FAERS Safety Report 14630942 (Version 1)
Quarter: 2018Q1

REPORT INFORMATION
  Report Type: Spontaneous
  Country: US (occurrence: US)
  Receive Date: 20180313
  Receipt Date: 20180313
  Transmission Date: 20180509
  Serious: Yes (Hospitalization, Other)
  Sender: FDA-Public Use
  Company Number: US-RECORDATI RARE DISEASES INC.-US-R13005-18-00062

PATIENT
  Age: 51 Year
  Sex: Female

DRUGS (1)
  1. METHAMPHETAMINE [Suspect]
     Active Substance: METHAMPHETAMINE
     Indication: PRODUCT USED FOR UNKNOWN INDICATION
     Route: 065

REACTIONS (5)
  - Small intestinal resection [Unknown]
  - Duodenal ulcer repair [Unknown]
  - Gastrointestinal necrosis [Unknown]
  - Duodenal ulcer perforation [Unknown]
  - Jejunal perforation [Unknown]
